FAERS Safety Report 15322397 (Version 4)
Quarter: 2019Q3

REPORT INFORMATION
  Report Type: Report from Study
  Country: FR (occurrence: FR)
  Receive Date: 20180827
  Receipt Date: 20190712
  Transmission Date: 20191004
  Serious: Yes (Life-Threatening, Hospitalization, Other)
  Sender: FDA-Public Use
  Company Number: PHHY2018FR021828

PATIENT
  Sex: Female
  Weight: 63 kg

DRUGS (1)
  1. VOTRIENT [Suspect]
     Active Substance: PAZOPANIB HYDROCHLORIDE
     Indication: RENAL CANCER METASTATIC
     Dosage: 800 MG, QD
     Route: 048
     Dates: start: 20180514, end: 20180802

REACTIONS (9)
  - Fatigue [Recovering/Resolving]
  - Cell death [Recovered/Resolved]
  - Asthenia [Recovered/Resolved]
  - Hypophosphataemia [Recovered/Resolved]
  - Hypertension [Recovered/Resolved]
  - Aphthous ulcer [Recovered/Resolved]
  - Alanine aminotransferase increased [Recovering/Resolving]
  - Aspartate aminotransferase increased [Recovering/Resolving]
  - Diarrhoea [Recovered/Resolved]

NARRATIVE: CASE EVENT DATE: 20180601
